FAERS Safety Report 14513297 (Version 1)
Quarter: 2018Q1

REPORT INFORMATION
  Report Type: Spontaneous
  Country: US (occurrence: US)
  Receive Date: 20180208
  Receipt Date: 20180208
  Transmission Date: 20180509
  Serious: Yes (Hospitalization)
  Sender: FDA-Public Use
  Company Number: None

PATIENT
  Sex: Female
  Weight: 63 kg

DRUGS (2)
  1. WOMEN^S MULTI VITAMIN [Concomitant]
  2. NUVARING [Suspect]
     Active Substance: ETHINYL ESTRADIOL\ETONOGESTREL
     Indication: CONTRACEPTION
     Dosage: ?          OTHER FREQUENCY:1 EVERY MONTH;?
     Route: 067
     Dates: start: 20151105, end: 20180201

REACTIONS (5)
  - Photopsia [None]
  - Brain oedema [None]
  - Seizure [None]
  - Cerebral thrombosis [None]
  - Migraine [None]

NARRATIVE: CASE EVENT DATE: 20180131
